FAERS Safety Report 5876628-9 (Version None)
Quarter: 2008Q3

REPORT INFORMATION
  Report Type: 
  Country: None (occurrence: None)
  Receive Date: 20080908
  Receipt Date: 20080826
  Transmission Date: 20090109
  Serious: Yes (Hospitalization)
  Sender: FDA-Public Use
  Company Number: 237762J08USA

PATIENT
  Age: 42 Year
  Sex: Female

DRUGS (6)
  1. REBIF [Suspect]
     Indication: MULTIPLE SCLEROSIS
     Dosage: 44 MCG, 3 IN 1 WEEKS, SUBCUTANEOUS
     Route: 058
     Dates: start: 20050613
  2. DIAZEPAM [Concomitant]
  3. ZOLOFT [Concomitant]
  4. ACIPHEX (RABERAZOLE SODIUM) [Concomitant]
  5. MOTRIN [Concomitant]
  6. PERCOCET [Concomitant]

REACTIONS (8)
  - AURICULAR SWELLING [None]
  - CHILLS [None]
  - ERYTHEMA [None]
  - LYMPHADENOPATHY [None]
  - MASS [None]
  - OEDEMA PERIPHERAL [None]
  - PAIN [None]
  - SWEATING FEVER [None]
